FAERS Safety Report 5402624-1 (Version None)
Quarter: 2007Q3

REPORT INFORMATION
  Report Type: 
  Country: None (occurrence: None)
  Receive Date: 20070801
  Receipt Date: 20070307
  Transmission Date: 20080115
  Serious: No
  Sender: FDA-Public Use
  Company Number: A0642195A

PATIENT
  Age: 50 Year
  Sex: Female

DRUGS (2)
  1. IMITREX [Suspect]
     Indication: MIGRAINE
     Dosage: 25MG MONTHLY
     Route: 048
     Dates: end: 20070306
  2. IMITREX [Suspect]

REACTIONS (1)
  - OPTIC NERVE INJURY [None]
